FAERS Safety Report 6223108-7 (Version None)
Quarter: 2009Q2

REPORT INFORMATION
  Report Type: 
  Country: None (occurrence: None)
  Receive Date: 20090611
  Receipt Date: 20090602
  Transmission Date: 20091009
  Serious: Yes (Death, Other)
  Sender: FDA-Public Use
  Company Number: BE-JNJFOC-20090600780

PATIENT
  Age: 17 Year
  Sex: Female

DRUGS (2)
  1. INFLIXIMAB [Suspect]
     Indication: GRANULOMA
     Dosage: 3 DOSES
     Route: 042
  2. CYCLOSPORINE [Suspect]
     Indication: DRUG USE FOR UNKNOWN INDICATION

REACTIONS (2)
  - HYPERTENSIVE ENCEPHALOPATHY [None]
  - PROGRESSIVE MULTIFOCAL LEUKOENCEPHALOPATHY [None]
